FAERS Safety Report 5019081-X (Version None)
Quarter: 2006Q2

REPORT INFORMATION
  Report Type: 
  Country: None (occurrence: None)
  Receive Date: 20060606
  Receipt Date: 20051206
  Transmission Date: 20061013
  Serious: Yes (Disabling)
  Sender: FDA-Public Use
  Company Number: JP-BRACCO-BRO-009649

PATIENT
  Sex: Female
  Weight: 60 kg

DRUGS (8)
  1. IOPAMIRON [Suspect]
     Route: 013
     Dates: start: 20050603, end: 20050603
  2. IOPAMIRON [Suspect]
     Indication: MENINGIOMA
     Route: 013
     Dates: start: 20050603, end: 20050603
  3. IOPAMIRON [Suspect]
     Indication: ANGIOGRAM CEREBRAL
     Route: 013
     Dates: start: 20050603, end: 20050603
  4. HEPARIN [Suspect]
     Indication: DRUG USE FOR UNKNOWN INDICATION
     Route: 013
     Dates: start: 20050603, end: 20050603
  5. RINGER'S [Concomitant]
     Route: 050
  6. PENTAZOCINE LACTATE [Concomitant]
     Route: 050
     Dates: start: 20050603, end: 20050603
  7. XYLOCAINE [Concomitant]
     Dosage: 1%
     Route: 050
     Dates: start: 20050603, end: 20050603
  8. SALINE [Concomitant]
     Route: 050
     Dates: start: 20050603, end: 20050603

REACTIONS (2)
  - HYDROCEPHALUS [None]
  - INTRACRANIAL TUMOUR HAEMORRHAGE [None]
